FAERS Safety Report 9299859 (Version 1)
Quarter: 2013Q1

REPORT INFORMATION
  Report Type: Spontaneous
  Country: US (occurrence: None)
  Receive Date: 20121231
  Receipt Date: 20121231
  Transmission Date: 20140127
  Serious: Yes (Other)
  Sender: FDA-Public Use
  Company Number: RB-45016-2012

PATIENT
  Age: 46 Year
  Sex: Female

DRUGS (6)
  1. SUBOXONE 8 MG [Suspect]
     Indication: DRUG DEPENDENCE
     Dosage: 8 MG, SUBOXONE FILM SUBLINGUAL
     Route: 060
     Dates: start: 2008, end: 20120920
  2. METHADONE [Suspect]
     Indication: DRUG DEPENDENCE
     Route: 048
     Dates: start: 2008, end: 20120920
  3. XANAX [Concomitant]
  4. AMBIEN [Concomitant]
  5. RISPERDAL [Concomitant]
  6. CYMBALTA [Concomitant]

REACTIONS (6)
  - Hallucination [None]
  - Vomiting [None]
  - Off label use [None]
  - Sensation of heaviness [None]
  - Somnolence [None]
  - Agitation [None]
